FAERS Safety Report 25673422 (Version 4)
Quarter: 2025Q4

REPORT INFORMATION
  Report Type: Spontaneous
  Country: US (occurrence: US)
  Receive Date: 20250813
  Receipt Date: 20251009
  Transmission Date: 20260117
  Serious: Yes (Hospitalization)
  Sender: AMGEN
  Company Number: US-AMGEN-USASP2025158798

PATIENT
  Age: 54 Year
  Sex: Male

DRUGS (3)
  1. BLINCYTO [Suspect]
     Active Substance: BLINATUMOMAB
     Indication: Acute lymphocytic leukaemia
     Dosage: 32.5 MICROGRAM ( DOSE ORDERED: 32.5 MCG, 48-HOUR BAG)
     Route: 065
     Dates: start: 20250728, end: 20250729
  2. BLINCYTO [Suspect]
     Active Substance: BLINATUMOMAB
     Dosage: 9 MICROGRAM, THE DOSE TO A LOWER DOSE: 21.25 OVER 48 HOURS OR 9 MCG/HOUR (RESTARTED AT LOWER DOSE)
     Route: 065
     Dates: start: 20250804
  3. BLINCYTO [Suspect]
     Active Substance: BLINATUMOMAB
     Dosage: UNK
     Route: 065

REACTIONS (2)
  - Immune effector cell-associated neurotoxicity syndrome [Unknown]
  - Intercepted product preparation error [Unknown]

NARRATIVE: CASE EVENT DATE: 20250728
